FAERS Safety Report 14375192 (Version 2)
Quarter: 2018Q1

REPORT INFORMATION
  Report Type: Spontaneous
  Country: US (occurrence: US)
  Receive Date: 20180111
  Receipt Date: 20180323
  Transmission Date: 20180509
  Serious: Yes (Life-Threatening, Other)
  Sender: FDA-Public Use
  Company Number: US-GLENMARK PHARMACEUTICALS-2017GMK030473

PATIENT
  Age: 22 Year
  Sex: Male

DRUGS (2)
  1. ROPIVACAINE                        /00986302/ [Suspect]
     Active Substance: ROPIVACAINE HYDROCHLORIDE
     Indication: PRODUCT USED FOR UNKNOWN INDICATION
     Dosage: 25 ML, 2 INCH 21 GAUGE NEEDLE WAS USED
     Route: 065
  2. LIDOCAINE. [Suspect]
     Active Substance: LIDOCAINE
     Indication: VENTRICULAR TACHYCARDIA
     Dosage: 130 MG, IN TOTAL
     Route: 042

REACTIONS (5)
  - Condition aggravated [Recovered/Resolved]
  - Cardiac failure congestive [Recovered/Resolved]
  - Arrhythmia [Recovered/Resolved]
  - Cardiotoxicity [Recovered/Resolved]
  - Cardiac arrest [Recovered/Resolved]
